FAERS Safety Report 9496241 (Version 2)
Quarter: 2013Q3

REPORT INFORMATION
  Report Type: Spontaneous
  Country: GB (occurrence: None)
  Receive Date: 20130829
  Receipt Date: 20130912
  Transmission Date: 20140515
  Serious: Yes (Hospitalization, Other)
  Sender: FDA-Public Use
  Company Number: AUR-APL-2013-07043

PATIENT
  Age: 77 Year
  Sex: Male

DRUGS (2)
  1. SIMVASTATIN (SIMVASTATIN) [Suspect]
     Indication: HYPERCHOLESTEROLAEMIA
     Route: 048
  2. OMEPRAZOLE (OMEPRAZOLE) [Concomitant]

REACTIONS (4)
  - Cerebral haemorrhage [None]
  - Skull fracture [None]
  - Cerebrovascular accident [None]
  - Fall [None]
